FAERS Safety Report 20796866 (Version 1)
Quarter: 2022Q2

REPORT INFORMATION
  Report Type: Spontaneous
  Country: FR (occurrence: None)
  Receive Date: 20220506
  Receipt Date: 20220506
  Transmission Date: 20220721
  Serious: Yes (Death)
  Sender: FDA-Public Use
  Company Number: 2022A173438

PATIENT
  Age: 65 Year
  Sex: Male

DRUGS (15)
  1. IMFINZI [Suspect]
     Active Substance: DURVALUMAB
     Indication: Lung neoplasm malignant
     Dosage: C4
     Route: 042
     Dates: start: 20210316, end: 20210316
  2. IMFINZI [Suspect]
     Active Substance: DURVALUMAB
     Indication: Lung neoplasm malignant
     Dosage: C3
     Route: 042
     Dates: start: 20210224, end: 20210224
  3. IMFINZI [Suspect]
     Active Substance: DURVALUMAB
     Indication: Lung neoplasm malignant
     Dosage: C2
     Route: 042
     Dates: start: 20210203, end: 20210203
  4. IMFINZI [Suspect]
     Active Substance: DURVALUMAB
     Indication: Lung neoplasm malignant
     Dosage: C1
     Route: 042
     Dates: start: 20210114, end: 20210114
  5. CARBOPLATIN [Concomitant]
     Active Substance: CARBOPLATIN
     Dosage: C3
     Dates: start: 20210224, end: 20210224
  6. CARBOPLATIN [Concomitant]
     Active Substance: CARBOPLATIN
     Dosage: C4
     Dates: start: 20210315, end: 20210315
  7. CARBOPLATIN [Concomitant]
     Active Substance: CARBOPLATIN
     Dosage: C1
     Dates: start: 20210114, end: 20210114
  8. CARBOPLATIN [Concomitant]
     Active Substance: CARBOPLATIN
     Dosage: C2
     Dates: start: 20210203, end: 20210203
  9. CRESTOR [Concomitant]
     Active Substance: ROSUVASTATIN CALCIUM
  10. KARDEGIC [Concomitant]
     Active Substance: ASPIRIN DL-LYSINE
  11. ETOPOSIDE [Concomitant]
     Active Substance: ETOPOSIDE
     Dosage: C3
     Dates: start: 20210224, end: 20210226
  12. ETOPOSIDE [Concomitant]
     Active Substance: ETOPOSIDE
     Dosage: C1
     Dates: start: 20210114, end: 20210116
  13. ETOPOSIDE [Concomitant]
     Active Substance: ETOPOSIDE
     Dosage: C4
     Dates: start: 20210315, end: 20210317
  14. ETOPOSIDE [Concomitant]
     Active Substance: ETOPOSIDE
     Dosage: C2
     Dates: start: 20210203, end: 20210205
  15. IRBESARTAN [Concomitant]
     Active Substance: IRBESARTAN

REACTIONS (1)
  - Encephalitis autoimmune [Fatal]

NARRATIVE: CASE EVENT DATE: 20210406
